FAERS Safety Report 8882477 (Version 2)
Quarter: 2012Q4

REPORT INFORMATION
  Report Type: 
  Country: GB (occurrence: GB)
  Receive Date: 20121102
  Receipt Date: 20121115
  Transmission Date: 20130627
  Serious: Yes (Other)
  Sender: FDA-Public Use
  Company Number: GB-SANOFI-AVENTIS-2012SA078009

PATIENT
  Age: 63 Year
  Sex: Female

DRUGS (9)
  1. LANTUS SOLOSTAR [Suspect]
     Indication: DIABETES
     Dosage: Dose:20 unit(s)
     Route: 058
  2. SOLOSTAR [Suspect]
     Indication: DEVICE THERAPY
  3. SOLOSTAR [Suspect]
     Indication: DEVICE THERAPY
  4. NOVORAPID [Concomitant]
     Indication: DIABETES
  5. ASPIRIN [Concomitant]
  6. BISOPROLOL [Concomitant]
     Indication: HYPERTENSION
  7. RAMIPRIL [Concomitant]
     Indication: HYPERTENSION
  8. SIMVASTATIN [Concomitant]
     Indication: HIGH CHOLESTEROL
     Dosage: frequency: once in the evening
  9. CITALOPRAM [Concomitant]
     Indication: DEPRESSION

REACTIONS (1)
  - Hypoglycaemic coma [Recovered/Resolved]
